FAERS Safety Report 21748145 (Version 1)
Quarter: 2022Q4

REPORT INFORMATION
  Report Type: Spontaneous
  Country: GR (occurrence: GR)
  Receive Date: 20221219
  Receipt Date: 20221219
  Transmission Date: 20230112
  Serious: Yes (Other)
  Sender: FDA-Public Use
  Company Number: GR-PFIZER INC-202201362020

PATIENT
  Age: 66 Year
  Sex: Female

DRUGS (4)
  1. PAXLOVID [Suspect]
     Active Substance: NIRMATRELVIR\RITONAVIR
     Indication: COVID-19 treatment
     Dosage: 3 DF (300 MG (2 TABS OF 150 MG NIRMATRELVIR) WITH 100 MG RITONAVIR), 2X/DAY (EVERY 12H)
     Dates: start: 20221205
  2. BINOSTO [Concomitant]
     Active Substance: ALENDRONATE SODIUM
     Indication: Osteoporosis
     Dosage: UNK, WEEKLY
  3. TENORMIN [Concomitant]
     Active Substance: ATENOLOL
     Indication: Arrhythmia
  4. LEVOTHYROXINE [Concomitant]
     Active Substance: LEVOTHYROXINE
     Indication: Hypothyroidism

REACTIONS (5)
  - Mouth cyst [Not Recovered/Not Resolved]
  - Mouth swelling [Not Recovered/Not Resolved]
  - Fatigue [Unknown]
  - Incorrect dose administered [Unknown]
  - Off label use [Unknown]

NARRATIVE: CASE EVENT DATE: 20221201
